FAERS Safety Report 10452898 (Version 1)
Quarter: 2014Q3

REPORT INFORMATION
  Report Type: Spontaneous
  Country: US (occurrence: None)
  Receive Date: 20140912
  Receipt Date: 20140912
  Transmission Date: 20150326
  Serious: No
  Sender: FDA-Public Use
  Company Number: None

PATIENT
  Age: 61 Year
  Sex: Male

DRUGS (1)
  1. XTANDI [Suspect]
     Active Substance: ENZALUTAMIDE
     Indication: PROSTATE CANCER
     Dosage: 40MG  4CQD  ORAL
     Route: 048
     Dates: start: 20140421

REACTIONS (2)
  - Fatigue [None]
  - Flushing [None]

NARRATIVE: CASE EVENT DATE: 20140421
